FAERS Safety Report 24754709 (Version 1)
Quarter: 2024Q4

REPORT INFORMATION
  Report Type: Spontaneous
  Country: RU (occurrence: RU)
  Receive Date: 20241219
  Receipt Date: 20241219
  Transmission Date: 20250114
  Serious: Yes (Hospitalization, Other)
  Sender: DAIICHI
  Company Number: RU-ASTRAZENECA-202410RUS027513RU

PATIENT
  Age: 65 Year
  Sex: Female

DRUGS (2)
  1. TRASTUZUMAB DERUXTECAN [Suspect]
     Active Substance: TRASTUZUMAB DERUXTECAN
     Indication: HER2 positive breast cancer
     Dosage: 5.4 MILLIGRAM/KILOGRAM
     Route: 065
     Dates: start: 20241016
  2. TRASTUZUMAB DERUXTECAN [Suspect]
     Active Substance: TRASTUZUMAB DERUXTECAN
     Dosage: 4.4 MILLIGRAM/KILOGRAM
     Route: 065
     Dates: start: 20241106

REACTIONS (8)
  - Thrombocytopenia [Recovered/Resolved]
  - Haemoglobin decreased [Recovered/Resolved]
  - Asthenia [Recovering/Resolving]
  - Pneumonitis [Not Recovered/Not Resolved]
  - Ascites [Not Recovered/Not Resolved]
  - Hepatitis [Not Recovered/Not Resolved]
  - Blood bilirubin increased [Not Recovered/Not Resolved]
  - Nausea [Recovered/Resolved]
